FAERS Safety Report 18208726 (Version 1)
Quarter: 2020Q3

REPORT INFORMATION
  Report Type: Spontaneous
  Country: FR (occurrence: FR)
  Receive Date: 20200828
  Receipt Date: 20200828
  Transmission Date: 20201103
  Serious: Yes (Other)
  Sender: FDA-Public Use
  Company Number: ALC2020FR006786

PATIENT

DRUGS (1)
  1. SKIACOL [Suspect]
     Active Substance: CYCLOPENTOLATE
     Indication: OPHTHALMOLOGICAL EXAMINATION
     Dosage: 6 DRP, OT
     Route: 047
     Dates: start: 20200805

REACTIONS (3)
  - Wrong schedule [Recovered/Resolved]
  - Medication error [Recovered/Resolved]
  - Mydriasis [Unknown]

NARRATIVE: CASE EVENT DATE: 20200805
